FAERS Safety Report 16368379 (Version 1)
Quarter: 2019Q2

REPORT INFORMATION
  Report Type: Spontaneous
  Country: TH (occurrence: TH)
  Receive Date: 20190529
  Receipt Date: 20190529
  Transmission Date: 20190711
  Serious: Yes (Disabling, Other)
  Sender: FDA-Public Use
  Company Number: TH-APOPHARMA USA, INC.-2019AP015249

PATIENT
  Sex: Female
  Weight: 12 kg

DRUGS (1)
  1. ALKERAN [Suspect]
     Active Substance: MELPHALAN
     Indication: RETINOBLASTOMA
     Dosage: 5 MG, SINGLE
     Route: 013
     Dates: start: 20160613, end: 20160613

REACTIONS (1)
  - Retinal detachment [Recovered/Resolved with Sequelae]
